FAERS Safety Report 15806131 (Version 1)
Quarter: 2019Q1

REPORT INFORMATION
  Report Type: Spontaneous
  Country: JP (occurrence: JP)
  Receive Date: 20190110
  Receipt Date: 20190110
  Transmission Date: 20190417
  Serious: Yes (Other)
  Sender: FDA-Public Use
  Company Number: JP-BAUSCH-BL-2019-000514

PATIENT
  Age: 73 Year
  Sex: Female

DRUGS (9)
  1. PREDNISOLONE. [Suspect]
     Active Substance: PREDNISOLONE
     Indication: EPSTEIN-BARR VIRUS INFECTION
     Route: 048
  2. METHYLPREDNISOLONE. [Suspect]
     Active Substance: METHYLPREDNISOLONE
     Indication: EPSTEIN-BARR VIRUS INFECTION
     Dosage: PULSE THERAPY
     Route: 065
  3. ACICLOVIR [Concomitant]
     Active Substance: ACYCLOVIR
     Indication: MASS
     Route: 042
  4. METHYLPREDNISOLONE. [Suspect]
     Active Substance: METHYLPREDNISOLONE
     Indication: IRIDOCYCLITIS
  5. PREDNISOLONE. [Suspect]
     Active Substance: PREDNISOLONE
     Indication: MASS
  6. ACICLOVIR [Concomitant]
     Active Substance: ACYCLOVIR
     Indication: EPSTEIN-BARR VIRUS INFECTION
  7. ACICLOVIR [Concomitant]
     Active Substance: ACYCLOVIR
     Indication: IRIDOCYCLITIS
  8. PREDNISOLONE. [Suspect]
     Active Substance: PREDNISOLONE
     Indication: IRIDOCYCLITIS
  9. METHYLPREDNISOLONE. [Suspect]
     Active Substance: METHYLPREDNISOLONE
     Indication: MASS

REACTIONS (1)
  - Condition aggravated [Recovered/Resolved]
